FAERS Safety Report 4826508-2 (Version None)
Quarter: 2005Q4

REPORT INFORMATION
  Report Type: 
  Country: None (occurrence: None)
  Receive Date: 20051111
  Receipt Date: 20050804
  Transmission Date: 20060501
  Serious: Yes (Hospitalization)
  Sender: FDA-Public Use
  Company Number: US-MERCK-0508USA01276

PATIENT
  Age: 69 Year
  Sex: Male
  Weight: 136 kg

DRUGS (19)
  1. VIOXX [Suspect]
     Indication: OSTEOARTHRITIS
     Route: 048
     Dates: start: 20000101, end: 20030428
  2. VIOXX [Suspect]
     Route: 048
     Dates: start: 20030428, end: 20031001
  3. VIOXX [Suspect]
     Route: 048
     Dates: start: 20031006, end: 20040101
  4. VIOXX [Suspect]
     Route: 048
     Dates: start: 20040101, end: 20040914
  5. VIOXX [Suspect]
     Indication: BACK PAIN
     Route: 048
     Dates: start: 20000101, end: 20030428
  6. VIOXX [Suspect]
     Route: 048
     Dates: start: 20030428, end: 20031001
  7. VIOXX [Suspect]
     Route: 048
     Dates: start: 20031006, end: 20040101
  8. VIOXX [Suspect]
     Route: 048
     Dates: start: 20040101, end: 20040914
  9. COZAAR [Concomitant]
     Indication: CARDIAC DISORDER
     Route: 065
     Dates: start: 19900101
  10. AVANDIA [Concomitant]
     Indication: DIABETES MELLITUS NON-INSULIN-DEPENDENT
     Route: 065
     Dates: start: 20010101
  11. GLYBURIDE [Concomitant]
     Indication: DIABETES MELLITUS NON-INSULIN-DEPENDENT
     Route: 065
     Dates: start: 19970101
  12. LIPITOR [Concomitant]
     Indication: BLOOD CHOLESTEROL INCREASED
     Route: 065
     Dates: start: 19900101
  13. ASPIRIN [Concomitant]
     Route: 065
  14. ASPIRIN [Concomitant]
     Route: 065
  15. ALLOPURINOL [Concomitant]
     Route: 065
  16. ALDACTONE [Concomitant]
     Route: 065
  17. CEFADROXIL [Concomitant]
     Route: 065
  18. GLUCOPHAGE [Concomitant]
     Route: 065
     Dates: start: 19990101
  19. PEPCID [Concomitant]
     Route: 065

REACTIONS (22)
  - ANGINA UNSTABLE [None]
  - ATELECTASIS [None]
  - ATRIAL FIBRILLATION [None]
  - BLOOD PRESSURE SYSTOLIC INCREASED [None]
  - BRONCHITIS [None]
  - CARDIAC FAILURE CONGESTIVE [None]
  - CHOLECYSTECTOMY [None]
  - CORONARY ARTERY DISEASE [None]
  - CORONARY ARTERY STENOSIS [None]
  - GALLBLADDER DISORDER [None]
  - HAEMATOMA [None]
  - HAEMOGLOBIN DECREASED [None]
  - HERNIA [None]
  - HERNIA REPAIR [None]
  - MUSCULOSKELETAL CHEST PAIN [None]
  - MYOCARDIAL INFARCTION [None]
  - OVERDOSE [None]
  - PNEUMONIA [None]
  - PULMONARY EMBOLISM [None]
  - PULMONARY OEDEMA [None]
  - SWELLING [None]
  - WOUND SECRETION [None]
